FAERS Safety Report 6141693-0 (Version None)
Quarter: 2009Q2

REPORT INFORMATION
  Report Type: 
  Country: None (occurrence: None)
  Receive Date: 20090402
  Receipt Date: 20090326
  Transmission Date: 20091009
  Serious: Yes (Other)
  Sender: FDA-Public Use
  Company Number: US-ASTRAZENECA-2008UW26130

PATIENT
  Age: 60 Year
  Sex: Female

DRUGS (9)
  1. ARIMIDEX [Suspect]
     Route: 048
     Dates: start: 20080714, end: 20081101
  2. CRESTOR [Suspect]
     Route: 048
  3. ATENOLOL [Concomitant]
  4. ZESTRIL [Concomitant]
  5. LEVOTHYROXINE SODIUM [Concomitant]
  6. CALCIUM [Concomitant]
  7. OMEGA 2 [Concomitant]
  8. NIACIN [Concomitant]
  9. ALEVE [Concomitant]

REACTIONS (6)
  - ARTHRALGIA [None]
  - ARTHROPATHY [None]
  - JOINT CREPITATION [None]
  - JOINT STIFFNESS [None]
  - PAIN IN EXTREMITY [None]
  - TRIGGER FINGER [None]
